FAERS Safety Report 5501389-2 (Version None)
Quarter: 2007Q4

REPORT INFORMATION
  Report Type: 
  Country: None (occurrence: None)
  Receive Date: 20071026
  Receipt Date: 20071016
  Transmission Date: 20080405
  Serious: Yes (Death)
  Sender: FDA-Public Use
  Company Number: GXKR2007BE08907

PATIENT
  Age: 28 Year
  Sex: Male

DRUGS (2)
  1. TRAMADOL HCL [Suspect]
     Indication: ABDOMINAL PAIN
  2. BENZODIAZEPINE DERIVATIVES (NO INGREDIENTS/SUBSTANCES) [Concomitant]

REACTIONS (20)
  - ACUTE HEPATIC FAILURE [None]
  - APNOEA [None]
  - CARDIAC ARREST [None]
  - COAGULOPATHY [None]
  - GASTROINTESTINAL HAEMORRHAGE [None]
  - GLASGOW COMA SCALE ABNORMAL [None]
  - HEPATIC NECROSIS [None]
  - HEPATIC STEATOSIS [None]
  - HYPOGLYCAEMIA [None]
  - ISCHAEMIC HEPATITIS [None]
  - LUNG CONSOLIDATION [None]
  - METABOLIC ACIDOSIS [None]
  - MULTI-ORGAN FAILURE [None]
  - OVERDOSE [None]
  - PULMONARY ALVEOLAR HAEMORRHAGE [None]
  - PULMONARY OEDEMA [None]
  - PUPILLARY REFLEX IMPAIRED [None]
  - RENAL FAILURE ACUTE [None]
  - RENAL TUBULAR NECROSIS [None]
  - SINUS TACHYCARDIA [None]
